FAERS Safety Report 22132821 (Version 1)
Quarter: 2023Q1

REPORT INFORMATION
  Report Type: Spontaneous
  Country: DK (occurrence: DK)
  Receive Date: 20230323
  Receipt Date: 20230323
  Transmission Date: 20230418
  Serious: Yes (Other)
  Sender: FDA-Public Use
  Company Number: DK-BRISTOL-MYERS SQUIBB COMPANY-2023-037970

PATIENT
  Age: 42 Year
  Sex: Female

DRUGS (6)
  1. PEMBROLIZUMAB [Suspect]
     Active Substance: PEMBROLIZUMAB
     Indication: Metastatic malignant melanoma
     Dosage: 1ST CYCLE
     Dates: start: 2022
  2. PEMBROLIZUMAB [Suspect]
     Active Substance: PEMBROLIZUMAB
     Dosage: 2ND CYCLE
     Dates: start: 202212
  3. YERVOY [Suspect]
     Active Substance: IPILIMUMAB
     Indication: Metastatic malignant melanoma
     Dosage: 1ST CYCLE
     Dates: start: 202211
  4. YERVOY [Suspect]
     Active Substance: IPILIMUMAB
     Dosage: 2ND CYCLE
     Dates: start: 202212
  5. YERVOY [Suspect]
     Active Substance: IPILIMUMAB
     Dosage: 1ST CYCLE
     Dates: start: 202202, end: 202203
  6. OPDIVO [Suspect]
     Active Substance: NIVOLUMAB
     Indication: Metastatic malignant melanoma
     Dosage: 1ST CYCLE
     Dates: start: 202202, end: 202203

REACTIONS (9)
  - Cardiac disorder [Recovered/Resolved]
  - Liver disorder [Unknown]
  - Thyroiditis [Unknown]
  - Malignant neoplasm progression [Unknown]
  - Respiratory disorder [Unknown]
  - Urticaria [Recovered/Resolved]
  - Hypersensitivity [Recovered/Resolved]
  - Fatigue [Unknown]
  - Decreased appetite [Unknown]

NARRATIVE: CASE EVENT DATE: 20220201
